FAERS Safety Report 7941755-9 (Version None)
Quarter: 2011Q4

REPORT INFORMATION
  Report Type: 
  Country: None (occurrence: None)
  Receive Date: 20111128
  Receipt Date: 20110929
  Transmission Date: 20120403
  Serious: No
  Sender: FDA-Public Use
  Company Number: US-BAYER-2011-094418

PATIENT
  Sex: Male
  Weight: 71 kg

DRUGS (5)
  1. ALEVE (CAPLET) [Suspect]
     Indication: ARTHRITIS
     Dosage: 1 DF, BID
  2. ATENOLOL [Concomitant]
  3. CITALOPRAM HYDROBROMIDE [Concomitant]
  4. KEPPRA [Concomitant]
  5. QUINAPRIL [Concomitant]

REACTIONS (2)
  - ARTHRITIS [None]
  - NO ADVERSE EVENT [None]
